FAERS Safety Report 6901012-6 (Version None)
Quarter: 2010Q3

REPORT INFORMATION
  Report Type: 
  Country: None (occurrence: None)
  Receive Date: 20100803
  Receipt Date: 20100726
  Transmission Date: 20110219
  Serious: Yes (Death)
  Sender: FDA-Public Use
  Company Number: US-MYLANLABS-2010S1011465

PATIENT
  Age: 71 Year
  Sex: Female
  Weight: 104.33 kg

DRUGS (2)
  1. CLOZAPINE [Suspect]
     Indication: SCHIZOPHRENIA
     Route: 048
     Dates: start: 20070601, end: 20100519
  2. SEROQUEL [Concomitant]

REACTIONS (2)
  - CONVULSION [None]
  - FALL [None]
